FAERS Safety Report 8884035 (Version 2)
Quarter: 2012Q4

REPORT INFORMATION
  Report Type: 
  Country: US (occurrence: US)
  Receive Date: 20121104
  Receipt Date: 20121126
  Transmission Date: 20130627
  Serious: Yes (Hospitalization)
  Sender: FDA-Public Use
  Company Number: US-B.I. PHARMACEUTICALS,INC./RIDGEFIELD-2012-BP-26927BP

PATIENT
  Age: 75 Year
  Sex: Male

DRUGS (5)
  1. PRADAXA [Suspect]
     Indication: ATRIAL FIBRILLATION
     Dosage: 300 mg
     Route: 048
     Dates: start: 201202, end: 201210
  2. DIGOXIN [Concomitant]
  3. INSULIN [Concomitant]
  4. DIURETICS [Concomitant]
  5. ACE INHIBITORS [Concomitant]

REACTIONS (3)
  - Thrombocytopenia [Unknown]
  - Constipation [Unknown]
  - Nausea [Unknown]
